FAERS Safety Report 6765191-6 (Version None)
Quarter: 2010Q2

REPORT INFORMATION
  Report Type: 
  Country: None (occurrence: None)
  Receive Date: 20100610
  Receipt Date: 20100610
  Transmission Date: 20101027
  Serious: No
  Sender: FDA-Public Use
  Company Number: None

PATIENT
  Age: 2 Year
  Sex: Female
  Weight: 10.8863 kg

DRUGS (4)
  1. XOPENEX [Suspect]
     Indication: ASTHMA
     Dosage: 1 AMPULE EVERY 4 HOURS AS INHAL
     Dates: start: 20100410, end: 20100415
  2. XOPENEX [Suspect]
     Indication: CONDITION AGGRAVATED
     Dosage: 1 AMPULE EVERY 4 HOURS AS INHAL
     Dates: start: 20100410, end: 20100415
  3. XOPENEX [Suspect]
     Indication: ASTHMA
     Dosage: 1 AMPULE EVERY 4 HOURS AS INHAL
     Dates: start: 20100527, end: 20100530
  4. XOPENEX [Suspect]
     Indication: CONDITION AGGRAVATED
     Dosage: 1 AMPULE EVERY 4 HOURS AS INHAL
     Dates: start: 20100527, end: 20100530

REACTIONS (7)
  - AGITATION [None]
  - CRYING [None]
  - DISCOMFORT [None]
  - EYE IRRITATION [None]
  - IRRITABILITY [None]
  - PRURITUS [None]
  - RASH [None]
